FAERS Safety Report 5672335-6 (Version None)
Quarter: 2008Q2

REPORT INFORMATION
  Report Type: 
  Country: None (occurrence: None)
  Receive Date: 20080219
  Receipt Date: 20080102
  Transmission Date: 20081010
  Serious: No
  Sender: FDA-Public Use
  Company Number: TPA2007A02258

PATIENT
  Age: 72 Year
  Sex: Male
  Weight: 81.6475 kg

DRUGS (10)
  1. ROZEREM [Suspect]
     Indication: INSOMNIA
     Dosage: 8 MG, QHS, PER ORAL ; 8 MG, QHS, PER ORAL
     Route: 048
     Dates: start: 20070910, end: 20070911
  2. ROZEREM [Suspect]
     Indication: INSOMNIA
     Dosage: 8 MG, QHS, PER ORAL ; 8 MG, QHS, PER ORAL
     Route: 048
     Dates: start: 20071030, end: 20071031
  3. ASPIRIN [Concomitant]
  4. ALLOPURINOL [Concomitant]
  5. COLCHICINE (COLCHICINE) [Concomitant]
  6. LEXAPRO [Concomitant]
  7. METOPROLOL TARTRATE [Concomitant]
  8. ATORVASTATIN CALCIUM [Concomitant]
  9. LIPITOR [Concomitant]
  10. PREVACID [Concomitant]

REACTIONS (4)
  - DIZZINESS [None]
  - FEELING ABNORMAL [None]
  - HANGOVER [None]
  - STOMACH DISCOMFORT [None]
